FAERS Safety Report 22901450 (Version 5)
Quarter: 2025Q1

REPORT INFORMATION
  Report Type: Spontaneous
  Country: CA (occurrence: CA)
  Receive Date: 20230904
  Receipt Date: 20250131
  Transmission Date: 20250408
  Serious: Yes (Hospitalization, Other)
  Sender: TAKEDA
  Company Number: CA-TAKEDA-2023TUS084465

PATIENT
  Age: 64 Year
  Sex: Male

DRUGS (4)
  1. ENTYVIO [Suspect]
     Active Substance: VEDOLIZUMAB
     Indication: Crohn^s disease
  2. ENTYVIO [Suspect]
     Active Substance: VEDOLIZUMAB
  3. ENTYVIO [Suspect]
     Active Substance: VEDOLIZUMAB
  4. ENTYVIO [Suspect]
     Active Substance: VEDOLIZUMAB

REACTIONS (9)
  - Pneumothorax spontaneous [Recovered/Resolved]
  - Respiratory disorder [Unknown]
  - Chronic obstructive pulmonary disease [Recovered/Resolved]
  - Pneumonia [Recovered/Resolved]
  - Skin laceration [Not Recovered/Not Resolved]
  - Wound haemorrhage [Not Recovered/Not Resolved]
  - Respiratory fume inhalation disorder [Recovered/Resolved]
  - Pain in extremity [Recovered/Resolved]
  - Fatigue [Recovered/Resolved]

NARRATIVE: CASE EVENT DATE: 20230730
